FAERS Safety Report 9912887 (Version 2)
Quarter: 2014Q2

REPORT INFORMATION
  Report Type: Spontaneous
  Country: JP (occurrence: JP)
  Receive Date: 20140220
  Receipt Date: 20140414
  Transmission Date: 20141212
  Serious: No
  Sender: FDA-Public Use
  Company Number: JP-AMGEN-JPNSP2014011716

PATIENT
  Age: 46 Year
  Sex: Female
  Weight: 78 kg

DRUGS (7)
  1. VECTIBIX [Suspect]
     Indication: RECTAL CANCER RECURRENT
     Dosage: 300 MG, Q2WK
     Route: 041
     Dates: start: 20111020, end: 20111121
  2. ELPLAT [Suspect]
     Indication: RECTAL CANCER RECURRENT
     Dosage: 100 MG, Q2WK
     Route: 041
     Dates: start: 20111020, end: 20111121
  3. 5 FU [Suspect]
     Indication: RECTAL CANCER RECURRENT
     Dosage: 500 MG, Q2WK
     Route: 040
     Dates: start: 20111020, end: 20111121
  4. 5 FU [Suspect]
     Dosage: 3500 MG, Q2WK
     Route: 041
     Dates: start: 20111020, end: 20111121
  5. LEVOFOLINATE [Concomitant]
     Indication: RECTAL CANCER RECURRENT
     Dosage: 300 MG, Q2WK
     Route: 041
     Dates: start: 20111020, end: 20111121
  6. DECADRON [Concomitant]
     Indication: PROPHYLAXIS
     Dosage: 3.3 MG, Q2WK
     Route: 041
     Dates: start: 20111020
  7. NASEA [Concomitant]
     Indication: PROPHYLAXIS
     Dosage: 0.3 MG, Q2WK
     Route: 041
     Dates: start: 20111020

REACTIONS (1)
  - Skin ulcer [Recovered/Resolved]
